FAERS Safety Report 15809461 (Version 1)
Quarter: 2019Q1

REPORT INFORMATION
  Report Type: Spontaneous
  Country: IT (occurrence: IT)
  Receive Date: 20190111
  Receipt Date: 20190111
  Transmission Date: 20190417
  Serious: Yes (Hospitalization)
  Sender: FDA-Public Use
  Company Number: IT-TEVA-2019-IT-997173

PATIENT
  Age: 69 Year
  Sex: Male
  Weight: 86 kg

DRUGS (12)
  1. INDERAL [Concomitant]
     Active Substance: PROPRANOLOL HYDROCHLORIDE
     Indication: HYPOTENSION
     Route: 048
     Dates: start: 20181116, end: 20181227
  2. REPAGLINIDE EG 1 MG COMPRESSE [Concomitant]
     Indication: TYPE 2 DIABETES MELLITUS
     Route: 048
     Dates: start: 20181116, end: 20181227
  3. AMIODARONE MYLAN GENERICS [Concomitant]
     Indication: SUPRAVENTRICULAR TACHYCARDIA
     Route: 048
     Dates: start: 20181116, end: 20181227
  4. REUMAFLEX [METHOTREXATE SODIUM] [Concomitant]
     Active Substance: METHOTREXATE SODIUM
     Indication: RHEUMATOID ARTHRITIS
     Dosage: 15 MILLIGRAM DAILY;
     Route: 042
     Dates: start: 20181204, end: 20181227
  5. ACIDO ACETILSALICILICO NOVASOREL [Concomitant]
     Indication: INFARCTION
     Route: 048
     Dates: start: 20181116, end: 20181227
  6. PANTOPRAZOLO DOC GENERICI 20 MG COMPRESSE GASTRORESISTENTI [Concomitant]
     Indication: GASTROOESOPHAGEAL REFLUX DISEASE
     Route: 048
     Dates: start: 20181116, end: 20181227
  7. TORVAST 20 MG COMPRESSE RIVESTITE CON FILM [Concomitant]
     Indication: HYPERCHOLESTEROLAEMIA
     Dosage: WALLET COVERED TABLETS
     Route: 048
     Dates: start: 20181116, end: 20181227
  8. FUROSEMIDE. [Suspect]
     Active Substance: FUROSEMIDE
     Indication: OEDEMA
     Route: 048
     Dates: start: 20181116, end: 20181227
  9. DELTACORTENE 5 MG COMPRESSE [Suspect]
     Active Substance: PREDNISONE
     Indication: ASTHMA
     Route: 048
     Dates: start: 20181016, end: 20181227
  10. DELORAZEPAM ALMUS 1 MG/ML GOCCE ORALI, SOLUZIONE [Concomitant]
     Active Substance: DELORAZEPAM
     Indication: ANXIETY
     Route: 048
     Dates: start: 20181121, end: 20181227
  11. GLICLAZIDE MYLAN GENERICS 80 MG COMPRESSE [Concomitant]
     Indication: TYPE 2 DIABETES MELLITUS
     Route: 048
     Dates: start: 20181116, end: 20181227
  12. ADENURIC 80 MG FILM-COATED TABLETS [Concomitant]
     Indication: HYPERURICAEMIA
     Route: 048
     Dates: start: 20181116, end: 20181227

REACTIONS (1)
  - Fall [Unknown]

NARRATIVE: CASE EVENT DATE: 20181208
